FAERS Safety Report 7326202-2 (Version None)
Quarter: 2011Q1

REPORT INFORMATION
  Report Type: 
  Country: None (occurrence: None)
  Receive Date: 20110302
  Receipt Date: 20110222
  Transmission Date: 20110831
  Serious: Yes (Hospitalization)
  Sender: FDA-Public Use
  Company Number: A0774403A

PATIENT
  Age: 58 Year
  Sex: Male
  Weight: 99.5 kg

DRUGS (9)
  1. PREVACID [Concomitant]
  2. GLYBURIDE [Concomitant]
  3. INSULIN [Concomitant]
  4. GLYBURIDE [Concomitant]
  5. METFORMIN [Concomitant]
  6. METFORMIN [Concomitant]
  7. SIMVASTATIN [Concomitant]
  8. AVANDIA [Suspect]
     Dosage: 4MG PER DAY
     Route: 048
     Dates: start: 20030101, end: 20070101
  9. INSULIN [Concomitant]

REACTIONS (5)
  - ACUTE MYOCARDIAL INFARCTION [None]
  - CARDIAC FAILURE CONGESTIVE [None]
  - CARDIOMYOPATHY [None]
  - ACUTE RESPIRATORY DISTRESS SYNDROME [None]
  - CEREBROVASCULAR ACCIDENT [None]
